FAERS Safety Report 22060912 (Version 1)
Quarter: 2023Q1

REPORT INFORMATION
  Report Type: Spontaneous
  Country: CN (occurrence: CN)
  Receive Date: 20230303
  Receipt Date: 20230303
  Transmission Date: 20230417
  Serious: Yes (Life-Threatening, Other)
  Sender: FDA-Public Use
  Company Number: CN-ORGANON-O2303CHN000234

PATIENT
  Age: 71 Year
  Sex: Female
  Weight: 63 kg

DRUGS (6)
  1. DIPROSPAN [Suspect]
     Active Substance: BETAMETHASONE DIPROPIONATE\BETAMETHASONE SODIUM PHOSPHATE
     Indication: Tendonitis
     Dosage: 1ML, QD
     Dates: start: 20230224, end: 20230224
  2. DIPROSPAN [Suspect]
     Active Substance: BETAMETHASONE DIPROPIONATE\BETAMETHASONE SODIUM PHOSPHATE
     Indication: Anaesthesia
  3. TRANEXAMIC ACID [Suspect]
     Active Substance: TRANEXAMIC ACID
     Indication: Prophylaxis
     Dosage: 100ML, QD; (200ML, IVGTT, ST)
     Dates: start: 20230224, end: 20230224
  4. CEFAZOLIN SODIUM [Suspect]
     Active Substance: CEFAZOLIN SODIUM
     Indication: Prophylaxis
     Dosage: 2G, QD;100ML, IVGTT, SQ30
     Dates: start: 20230224, end: 20230224
  5. ROPIVACAINE HYDROCHLORIDE [Suspect]
     Active Substance: ROPIVACAINE HYDROCHLORIDE
     Indication: Anaesthesia
     Dosage: 75 MILLIGRAM, QD
     Dates: start: 20230224, end: 20230224
  6. SODIUM CHLORIDE [Concomitant]
     Active Substance: SODIUM CHLORIDE
     Dosage: 100ML, QD
     Dates: start: 20230224, end: 20230224

REACTIONS (8)
  - Anaphylactic shock [Recovered/Resolved]
  - Hypoaesthesia [Recovered/Resolved]
  - Eyelid oedema [Recovering/Resolving]
  - Chest discomfort [Recovered/Resolved]
  - Erythema [Recovered/Resolved]
  - Swelling face [Recovered/Resolved]
  - Blood pressure decreased [Recovered/Resolved]
  - Product use in unapproved indication [Unknown]

NARRATIVE: CASE EVENT DATE: 20230224
